FAERS Safety Report 5101118-0 (Version None)
Quarter: 2006Q3

REPORT INFORMATION
  Report Type: 
  Country: None (occurrence: None)
  Receive Date: 20060906
  Receipt Date: 20060829
  Transmission Date: 20061208
  Serious: Yes (Hospitalization)
  Sender: FDA-Public Use
  Company Number: 2006-138204-NL

PATIENT
  Age: 33 Year
  Sex: Female

DRUGS (1)
  1. ETONOGESTREL [Suspect]
     Dosage: DF
     Dates: start: 20021201, end: 20060614

REACTIONS (9)
  - DEVICE MIGRATION [None]
  - ERYTHEMA [None]
  - LIMB DISCOMFORT [None]
  - LYMPHATIC DISORDER [None]
  - MENSTRUATION IRREGULAR [None]
  - NEURITIS [None]
  - PARAESTHESIA [None]
  - POST PROCEDURAL COMPLICATION [None]
  - SCAR [None]
